FAERS Safety Report 5193878-8 (Version None)
Quarter: 2006Q4

REPORT INFORMATION
  Report Type: 
  Country: None (occurrence: None)
  Receive Date: 20061228
  Receipt Date: 20060907
  Transmission Date: 20070319
  Serious: Yes (Hospitalization)
  Sender: FDA-Public Use
  Company Number: US-ROCHE-462575

PATIENT
  Age: 23 Year
  Sex: Female
  Weight: 61.2 kg

DRUGS (2)
  1. ACCUTANE [Suspect]
     Indication: ACNE
     Route: 048
     Dates: start: 20020815, end: 20021215
  2. ACCUTANE [Suspect]
     Route: 048
     Dates: start: 20010822, end: 20020315

REACTIONS (34)
  - ABASIA [None]
  - ABNORMAL FAECES [None]
  - ACNE [None]
  - ANXIETY [None]
  - APHTHOUS STOMATITIS [None]
  - BONE MARROW DISORDER [None]
  - COLITIS [None]
  - CONDITION AGGRAVATED [None]
  - CROHN'S DISEASE [None]
  - CUSHINGOID [None]
  - DEPRESSION [None]
  - DISEASE RECURRENCE [None]
  - DRUG ERUPTION [None]
  - DRUG EXPOSURE DURING PREGNANCY [None]
  - DRUG EXPOSURE VIA BREAST MILK [None]
  - DRY SKIN [None]
  - EMOTIONAL DISTRESS [None]
  - ENTEROCOLITIS INFECTIOUS [None]
  - FOOD POISONING [None]
  - GASTROENTERITIS SALMONELLA [None]
  - HYPOTRICHOSIS [None]
  - INJURY [None]
  - INSOMNIA [None]
  - JOINT EFFUSION [None]
  - LIP DRY [None]
  - MIGRAINE [None]
  - OSTEONECROSIS [None]
  - PAIN [None]
  - PELVIC FLUID COLLECTION [None]
  - POLYP [None]
  - PREGNANCY [None]
  - PROCTITIS ULCERATIVE [None]
  - RHEUMATOID ARTHRITIS [None]
  - WEIGHT INCREASED [None]
